FAERS Safety Report 7339259-X (Version None)
Quarter: 2011Q1

REPORT INFORMATION
  Report Type: 
  Country: None (occurrence: None)
  Receive Date: 20110228
  Receipt Date: 20110214
  Transmission Date: 20110831
  Serious: Yes (Other)
  Sender: FDA-Public Use
  Company Number: AXC-2011-000090

PATIENT
  Age: 34 Year
  Sex: Female

DRUGS (2)
  1. URSODEOXYCHOLIC ACID (URSODEOXYCHOLIC ACID) UNKNOWN [Suspect]
     Indication: CHOLANGITIS SCLEROSING
     Dosage: 300 MG, BID, 300 MG QID
  2. PREDNISONE (PREDINSONE) [Concomitant]

REACTIONS (9)
  - PREMATURE RUPTURE OF MEMBRANES [None]
  - PREMATURE LABOUR [None]
  - HEPATIC ENZYME INCREASED [None]
  - DRUG INEFFECTIVE FOR UNAPPROVED INDICATION [None]
  - PRURITUS GENERALISED [None]
  - DRUG EXPOSURE DURING PREGNANCY [None]
  - TWIN PREGNANCY [None]
  - PLACENTA PRAEVIA [None]
  - CAESAREAN SECTION [None]
